FAERS Safety Report 9035112 (Version 1)
Quarter: 2013Q1

REPORT INFORMATION
  Report Type: Report from Study
  Country: US (occurrence: US)
  Receive Date: 20130129
  Receipt Date: 20130129
  Transmission Date: 20140127
  Serious: No
  Sender: FDA-Public Use
  Company Number: US-ABBOTT-12P-163-0889183-00

PATIENT
  Age: 20 Year
  Sex: Female

DRUGS (5)
  1. HUMIRA 40 MG/0.8 ML PEN [Suspect]
     Indication: CROHN^S DISEASE
     Dates: start: 20111003
  2. ASACOL [Concomitant]
     Indication: CROHN^S DISEASE
  3. CALCIUM [Concomitant]
     Indication: OSTEOPENIA
  4. PRENATAL VITAMINS [Concomitant]
     Indication: ALOPECIA
  5. LOW-OGESTREL-28 [Concomitant]
     Indication: CONTRACEPTION
     Dosage: DAILY

REACTIONS (1)
  - Alopecia [Not Recovered/Not Resolved]
